FAERS Safety Report 13352588 (Version 2)
Quarter: 2017Q2

REPORT INFORMATION
  Report Type: Other
  Country: IT (occurrence: IT)
  Receive Date: 20170320
  Receipt Date: 20170404
  Transmission Date: 20170830
  Serious: Yes (Other)
  Sender: FDA-Public Use
  Company Number: IT-TAKEDA-2017TEU000461

PATIENT
  Age: 78 Year
  Sex: Female

DRUGS (5)
  1. AULIN [Concomitant]
     Active Substance: NIMESULIDE
     Indication: CANCER PAIN
     Dosage: UNK
     Route: 048
  2. LANSOPRAZOLE. [Suspect]
     Active Substance: LANSOPRAZOLE
     Indication: HEAD AND NECK CANCER METASTATIC
     Dosage: UNK
     Route: 042
     Dates: start: 20160317, end: 20160317
  3. FENTANYL ACTAVIS                   /00174601/ [Concomitant]
     Indication: CANCER PAIN
     Dosage: UNK
     Route: 062
  4. CETUXIMAB. [Suspect]
     Active Substance: CETUXIMAB
     Indication: HEAD AND NECK CANCER METASTATIC
     Dosage: UNK
     Route: 042
     Dates: start: 20160317, end: 20160317
  5. BRUFEN                             /00109201/ [Concomitant]
     Active Substance: IBUPROFEN
     Indication: CANCER PAIN
     Dosage: UNK
     Route: 048

REACTIONS (5)
  - Loss of consciousness [Recovered/Resolved]
  - Pain in jaw [Recovered/Resolved]
  - Adverse event [Recovered/Resolved]
  - Hypotension [Recovered/Resolved]
  - Urticaria [Recovered/Resolved]

NARRATIVE: CASE EVENT DATE: 20160317
